FAERS Safety Report 8595647-5 (Version None)
Quarter: 2012Q3

REPORT INFORMATION
  Report Type: 
  Country: None (occurrence: None)
  Receive Date: 20120815
  Receipt Date: 20110729
  Transmission Date: 20120928
  Serious: No
  Sender: FDA-Public Use
  Company Number: -FOUGERA-2012FO000186

PATIENT
  Sex: Male

DRUGS (1)
  1. NITRO-BID [Suspect]
     Indication: PRODUCT USED FOR UNKNOWN INDICATION

REACTIONS (1)
  - ERECTILE DYSFUNCTION [None]
